FAERS Safety Report 12618026 (Version 4)
Quarter: 2016Q3

REPORT INFORMATION
  Report Type: Report from Study
  Country: PA (occurrence: PA)
  Receive Date: 20160803
  Receipt Date: 20160913
  Transmission Date: 20161109
  Serious: Yes (Hospitalization, Other)
  Sender: FDA-Public Use
  Company Number: PHHY2016PA106190

PATIENT
  Age: 89 Year
  Sex: Female

DRUGS (5)
  1. CORYOL [Concomitant]
     Active Substance: CARVEDILOL
     Indication: PRODUCT USED FOR UNKNOWN INDICATION
     Dosage: 6.25 MG, QD
     Route: 048
  2. PERINDOPRIL [Concomitant]
     Active Substance: PERINDOPRIL
     Indication: HYPERTENSION
     Route: 065
  3. VERAPAMIL [Concomitant]
     Active Substance: VERAPAMIL HYDROCHLORIDE
     Indication: HYPERTENSION
     Route: 065
  4. EXELON PATCH [Suspect]
     Active Substance: RIVASTIGMINE
     Indication: DEMENTIA ALZHEIMER^S TYPE
     Dosage: 18 MG/10 CM2 PATCH
     Route: 062
  5. IRBESARTAN. [Concomitant]
     Active Substance: IRBESARTAN
     Indication: HYPERTENSION
     Dosage: 300 MG, QD
     Route: 048

REACTIONS (15)
  - Asthma [Unknown]
  - Dysuria [Recovered/Resolved]
  - Nervousness [Unknown]
  - Aggression [Unknown]
  - Cardiac failure [Recovered/Resolved]
  - Memory impairment [Unknown]
  - Nasopharyngitis [Unknown]
  - Insomnia [Unknown]
  - Dementia Alzheimer^s type [Unknown]
  - Speech disorder [Unknown]
  - Oedema peripheral [Unknown]
  - Urinary tract infection [Recovered/Resolved]
  - Pulmonary oedema [Recovered/Resolved]
  - Agitation [Unknown]
  - Weight decreased [Unknown]

NARRATIVE: CASE EVENT DATE: 20160731
